FAERS Safety Report 11571964 (Version 1)
Quarter: 2015Q3

REPORT INFORMATION
  Report Type: Spontaneous
  Country: US (occurrence: US)
  Receive Date: 20150929
  Receipt Date: 20150929
  Transmission Date: 20151125
  Serious: No
  Sender: FDA-Public Use
  Company Number: US-SA-2015SA128299

PATIENT
  Age: 45 Year
  Sex: Female

DRUGS (1)
  1. AUBAGIO [Suspect]
     Active Substance: TERIFLUNOMIDE
     Route: 065
     Dates: end: 20150801

REACTIONS (2)
  - Fatigue [Recovered/Resolved]
  - Hypersomnia [Recovered/Resolved]
